FAERS Safety Report 17276718 (Version 1)
Quarter: 2020Q1

REPORT INFORMATION
  Report Type: Spontaneous
  Country: LT (occurrence: LT)
  Receive Date: 20200116
  Receipt Date: 20200116
  Transmission Date: 20200409
  Serious: Yes (Hospitalization)
  Sender: FDA-Public Use
  Company Number: LT-TEVA-2020-LT-1167822

PATIENT
  Age: 27 Year
  Sex: Male
  Weight: 90 kg

DRUGS (2)
  1. QUETIAPINE. [Suspect]
     Active Substance: QUETIAPINE
     Indication: SCHIZOPHRENIA
     Dosage: UNKNOWN
     Route: 048
     Dates: start: 20191208, end: 20191208
  2. AGOMELATINE 25 MG [Suspect]
     Active Substance: AGOMELATINE
     Indication: SCHIZOPHRENIA
     Dosage: 25 MILLIGRAM, UNKNOWN
     Route: 048
     Dates: start: 20191208, end: 20191208

REACTIONS (3)
  - Intentional overdose [Not Recovered/Not Resolved]
  - Hospitalisation [Not Recovered/Not Resolved]
  - Somnolence [Not Recovered/Not Resolved]

NARRATIVE: CASE EVENT DATE: 20191208
